FAERS Safety Report 11404185 (Version 1)
Quarter: 2015Q3

REPORT INFORMATION
  Report Type: Spontaneous
  Country: US (occurrence: None)
  Receive Date: 20150820
  Receipt Date: 20150820
  Transmission Date: 20151125
  Serious: Yes (Disabling)
  Sender: FDA-Public Use
  Company Number: None

PATIENT
  Age: 27 Year
  Sex: Male
  Weight: 79.38 kg

DRUGS (3)
  1. CHLORPROMAZINE. [Concomitant]
     Active Substance: CHLORPROMAZINE
  2. BENSTRAPINE [Concomitant]
  3. RISPERDAL [Suspect]
     Active Substance: RISPERIDONE
     Indication: SCHIZOPHRENIA, PARANOID TYPE
     Dosage: GIVEN INTO/UNDER THE SKIN
     Dates: start: 20150608, end: 20150819

REACTIONS (3)
  - Fear [None]
  - Anxiety [None]
  - Restlessness [None]

NARRATIVE: CASE EVENT DATE: 20150818
